FAERS Safety Report 8417629-6 (Version None)
Quarter: 2012Q2

REPORT INFORMATION
  Report Type: 
  Country: None (occurrence: None)
  Receive Date: 20120606
  Receipt Date: 20120529
  Transmission Date: 20120825
  Serious: Yes (Hospitalization)
  Sender: FDA-Public Use
  Company Number: CA-ROCHE-1075181

PATIENT
  Sex: Male

DRUGS (5)
  1. PREDNISONE TAB [Concomitant]
  2. XOLAIR [Suspect]
     Dates: start: 20110929
  3. VENTOLIN [Concomitant]
  4. XOLAIR [Suspect]
     Indication: ASTHMA
     Route: 058
     Dates: start: 20091009
  5. SYMBICORT [Concomitant]

REACTIONS (8)
  - BACK PAIN [None]
  - INFLUENZA [None]
  - CEREBROVASCULAR ACCIDENT [None]
  - DIZZINESS [None]
  - NASOPHARYNGITIS [None]
  - NECK PAIN [None]
  - PAIN [None]
  - FATIGUE [None]
